FAERS Safety Report 5871952-8 (Version None)
Quarter: 2008Q3

REPORT INFORMATION
  Report Type: 
  Country: None (occurrence: None)
  Receive Date: 20080905
  Receipt Date: 20080827
  Transmission Date: 20090109
  Serious: Yes (Other)
  Sender: FDA-Public Use
  Company Number: FR-JNJFOC-20080707353

PATIENT
  Sex: Male

DRUGS (5)
  1. KETODERM [Suspect]
     Indication: ANTIFUNGAL TREATMENT
     Route: 061
  2. TEMERIT [Concomitant]
     Indication: HYPERTENSION
     Route: 048
  3. COKENZEN [Concomitant]
     Indication: HYPERTENSION
     Route: 048
  4. BETAHISTINE [Concomitant]
     Indication: VERTIGO
     Route: 048
  5. ROSUVASTATIN CALCIUM [Concomitant]

REACTIONS (2)
  - LICHENOID KERATOSIS [None]
  - PRURITUS [None]
